FAERS Safety Report 8240395-4 (Version None)
Quarter: 2012Q1

REPORT INFORMATION
  Report Type: 
  Country: None (occurrence: None)
  Receive Date: 20120328
  Receipt Date: 20120320
  Transmission Date: 20120608
  Serious: Yes (Other)
  Sender: FDA-Public Use
  Company Number: CN-ROCHE-1051635

PATIENT
  Age: 31 Year
  Sex: Female

DRUGS (7)
  1. DYDROGESTERONE TAB [Concomitant]
     Indication: IN VITRO FERTILISATION
     Route: 048
  2. AZTREONAM [Concomitant]
     Indication: ANTI-INFECTIVE THERAPY
     Route: 041
  3. IMIPENEM [Concomitant]
     Indication: ANTI-INFECTIVE THERAPY
  4. CILASTATIN [Concomitant]
     Indication: ANTI-INFECTIVE THERAPY
  5. CEFTRIAXONE [Suspect]
     Indication: ANTI-INFECTIVE THERAPY
  6. MAGNESIUM SULFATE [Concomitant]
     Indication: TOCOLYSIS
  7. CLINDAMYCIN [Concomitant]
     Indication: ANTI-INFECTIVE THERAPY
     Route: 041

REACTIONS (2)
  - ABORTION THREATENED [None]
  - MATERNAL EXPOSURE DURING PREGNANCY [None]
